FAERS Safety Report 7911436-6 (Version None)
Quarter: 2011Q4

REPORT INFORMATION
  Report Type: 
  Country: None (occurrence: None)
  Receive Date: 20111114
  Receipt Date: 20111111
  Transmission Date: 20120403
  Serious: Yes (Death)
  Sender: FDA-Public Use
  Company Number: ES-BAYER-2011-109268

PATIENT
  Age: 89 Year
  Sex: Female
  Weight: 62 kg

DRUGS (1)
  1. ASPIRIN [Suspect]
     Route: 048
     Dates: start: 20080909, end: 20110911

REACTIONS (1)
  - HAEMATEMESIS [None]
